FAERS Safety Report 22177355 (Version 1)
Quarter: 2023Q2

REPORT INFORMATION
  Report Type: Spontaneous
  Country: GB (occurrence: GB)
  Receive Date: 20230405
  Receipt Date: 20230405
  Transmission Date: 20230722
  Serious: No
  Sender: FDA-Public Use
  Company Number: GB-CHEMOCENTRYX, INC.-2023GBCCXI0746

PATIENT

DRUGS (1)
  1. TAVNEOS [Suspect]
     Active Substance: AVACOPAN
     Indication: Sinus disorder
     Dosage: 30 MG
     Route: 048
     Dates: start: 20230103, end: 20230131

REACTIONS (2)
  - Hypertransaminasaemia [Unknown]
  - Off label use [Unknown]

NARRATIVE: CASE EVENT DATE: 20230101
